FAERS Safety Report 4503910-X (Version None)
Quarter: 2004Q4

REPORT INFORMATION
  Report Type: 
  Country: None (occurrence: None)
  Receive Date: 20041115
  Receipt Date: 20041028
  Transmission Date: 20050328
  Serious: Yes (Death, Other)
  Sender: FDA-Public Use
  Company Number: GAN-0171-04-USA

PATIENT
  Age: 60 Year
  Sex: Male

DRUGS (9)
  1. GANITE (GALLIUM NITRATE INJECTION) SOLUTION, 25MG/ML [Suspect]
     Indication: TRANSITIONAL CELL CARCINOMA
     Dosage: INTRAVENOUS
     Route: 042
     Dates: start: 20040501, end: 20040923
  2. GEMZAR [Concomitant]
  3. OXYCONTIN [Concomitant]
  4. PAXIL [Concomitant]
  5. COMPAZINE [Concomitant]
  6. ATIVAN [Concomitant]
  7. MIRTAZAPINE [Concomitant]
  8. SENOKOT [Concomitant]
  9. TYLENOL [Concomitant]

REACTIONS (20)
  - ANAEMIA [None]
  - ANOREXIA [None]
  - ASTHENIA [None]
  - BACK PAIN [None]
  - BLINDNESS [None]
  - CONFUSIONAL STATE [None]
  - DYSPNOEA [None]
  - FATIGUE [None]
  - HYPOAESTHESIA [None]
  - INSOMNIA [None]
  - ISCHAEMIA [None]
  - LYMPHADENOPATHY [None]
  - MUSCLE ATROPHY [None]
  - NEOPLASM MALIGNANT [None]
  - OEDEMA PERIPHERAL [None]
  - PLATELET COUNT INCREASED [None]
  - SYNCOPE [None]
  - VISION BLURRED [None]
  - WEIGHT DECREASED [None]
  - WHITE BLOOD CELL COUNT INCREASED [None]
